FAERS Safety Report 4549154-7 (Version None)
Quarter: 2005Q1

REPORT INFORMATION
  Report Type: 
  Country: None (occurrence: None)
  Receive Date: 20050107
  Receipt Date: 20050107
  Transmission Date: 20050727
  Serious: No
  Sender: FDA-Public Use
  Company Number: None

PATIENT
  Sex: Male
  Weight: 63.9572 kg

DRUGS (6)
  1. SIMVASTATIN [Suspect]
     Indication: HYPERLIPIDAEMIA
     Dosage: 40 MG AT BEDTIME ORAL
     Route: 048
     Dates: start: 20041021, end: 20041217
  2. LISINOPRIL [Concomitant]
  3. METOPROLOL [Concomitant]
  4. CALCET TRIPLE CALCIUM WITH VITAMIN D [Concomitant]
  5. CENTRUM [Concomitant]
  6. M.V.I. [Concomitant]

REACTIONS (1)
  - LIVER FUNCTION TEST ABNORMAL [None]
